FAERS Safety Report 23967377 (Version 1)
Quarter: 2024Q2

REPORT INFORMATION
  Report Type: Spontaneous
  Country: FR (occurrence: FR)
  Receive Date: 20240612
  Receipt Date: 20240612
  Transmission Date: 20240715
  Serious: Yes (Hospitalization)
  Sender: FDA-Public Use
  Company Number: None

PATIENT
  Age: 72 Year
  Sex: Female
  Weight: 60.5 kg

DRUGS (11)
  1. ALLOPURINOL [Suspect]
     Active Substance: ALLOPURINOL
     Indication: Hyperuricaemia
     Route: 048
     Dates: start: 20240306, end: 20240513
  2. POSACONAZOLE [Concomitant]
     Active Substance: POSACONAZOLE
     Indication: Opportunistic infection prophylaxis
     Route: 048
     Dates: start: 20240306
  3. ONDANSETRON [Concomitant]
     Active Substance: ONDANSETRON
     Indication: Nausea
     Dosage: BEFORE INJECTION OF VIDAZA, ALD IF NAUSEA RESISTANT
     Route: 048
     Dates: start: 20240306
  4. VIDAZA [Suspect]
     Active Substance: AZACITIDINE
     Indication: Acute myeloid leukaemia (in remission)
     Route: 058
     Dates: start: 20240403, end: 20240410
  5. VIDAZA [Suspect]
     Active Substance: AZACITIDINE
     Indication: Acute myeloid leukaemia (in remission)
     Route: 058
     Dates: start: 20240306, end: 20240311
  6. POLYETHYLENE GLYCOL 4000 [Concomitant]
     Active Substance: POLYETHYLENE GLYCOL 4000
     Indication: Constipation
     Dosage: TIME INTERVAL: AS NECESSARY
     Route: 048
     Dates: start: 20240306
  7. PRIMPERAN [Concomitant]
     Active Substance: METOCLOPRAMIDE HYDROCHLORIDE
     Indication: Nausea
     Dosage: TIME INTERVAL: AS NECESSARY
     Route: 048
     Dates: start: 20240306
  8. VENETOCLAX [Concomitant]
     Active Substance: VENETOCLAX
     Indication: Acute myeloid leukaemia (in remission)
     Route: 048
     Dates: start: 20240306, end: 20240306
  9. VENETOCLAX [Concomitant]
     Active Substance: VENETOCLAX
     Indication: Acute myeloid leukaemia (in remission)
     Route: 048
     Dates: start: 20240308, end: 20240320
  10. VENETOCLAX [Concomitant]
     Active Substance: VENETOCLAX
     Indication: Acute myeloid leukaemia (in remission)
     Route: 048
     Dates: start: 20240307, end: 20240307
  11. VENETOCLAX [Concomitant]
     Active Substance: VENETOCLAX
     Indication: Acute myeloid leukaemia (in remission)
     Route: 048
     Dates: start: 20240403, end: 20240417

REACTIONS (1)
  - Lung disorder [Recovering/Resolving]

NARRATIVE: CASE EVENT DATE: 20240425
